FAERS Safety Report 9521634 (Version 1)
Quarter: 2013Q1

REPORT INFORMATION
  Report Type: Spontaneous
  Country: US (occurrence: None)
  Receive Date: 20130305
  Receipt Date: 20130305
  Transmission Date: 20140127
  Serious: Yes (Other)
  Sender: FDA-Public Use
  Company Number: 163-21880-12081542

PATIENT
  Age: 87 Year
  Sex: Male

DRUGS (11)
  1. REVLIMID [Suspect]
     Indication: 5Q MINUS SYNDROME
     Route: 048
     Dates: start: 20120409, end: 2012
  2. LYRICA (PREGABALIN) [Concomitant]
  3. MULTIVITAMIN (MULTIVITAMINS) [Concomitant]
  4. CARAFATE (SUCRALFATE) TABLET, 1G [Concomitant]
  5. VICODIN (VICODIN) [Concomitant]
  6. IRON (IRON) [Concomitant]
  7. LISINOPRIL (LISINOPRIL) [Concomitant]
  8. OMEPRAZOLE (OMEPRAZOLE) [Concomitant]
  9. MIRAPEX (PRAMIPEXOLE DIHYDROCHLORIDE) [Concomitant]
  10. UDDERLY SMOOTH (ALL OTHER THERAPEUTIC PRODUCTS) [Concomitant]
  11. PRAMOXINE-HC (CORTANE B OTIC) [Concomitant]

REACTIONS (2)
  - Local swelling [None]
  - Pruritus [None]
